FAERS Safety Report 8498827-2 (Version None)
Quarter: 2012Q3

REPORT INFORMATION
  Report Type: 
  Country: None (occurrence: None)
  Receive Date: 20120710
  Receipt Date: 20120628
  Transmission Date: 20120928
  Serious: Yes (Other)
  Sender: FDA-Public Use
  Company Number: DE-AMGEN-DEUSP2012041055

PATIENT
  Age: 74 Year
  Sex: Male

DRUGS (4)
  1. ENBREL [Suspect]
     Indication: RHEUMATOID ARTHRITIS
     Dosage: 50 MG, 2X/WEEK
     Dates: start: 20111118, end: 20120520
  2. THYROID HORMONES [Concomitant]
     Dosage: UNK
  3. PREDNISOLONE [Concomitant]
     Dosage: UNK
  4. ARCOXIA [Concomitant]
     Dosage: UNK

REACTIONS (3)
  - EYE INFLAMMATION [None]
  - LACRIMATION INCREASED [None]
  - INTRAOCULAR PRESSURE INCREASED [None]
